FAERS Safety Report 6236610-9 (Version None)
Quarter: 2009Q2

REPORT INFORMATION
  Report Type: 
  Country: None (occurrence: None)
  Receive Date: 20090619
  Receipt Date: 20080430
  Transmission Date: 20091009
  Serious: Yes (Other)
  Sender: FDA-Public Use
  Company Number: US-ASTRAZENECA-2008UW08792

PATIENT
  Age: 64 Year
  Sex: Male

DRUGS (5)
  1. ATACAND HCT [Suspect]
     Indication: HYPERTENSION
     Dosage: 16 - 12.5 MG
     Route: 048
     Dates: start: 20020101
  2. LISINOPRIL [Concomitant]
  3. ASPIRIN [Concomitant]
     Route: 048
  4. HUMALOG [Concomitant]
  5. LEVAMIN [Concomitant]

REACTIONS (1)
  - RENAL IMPAIRMENT [None]
